FAERS Safety Report 15851667 (Version 1)
Quarter: 2019Q1

REPORT INFORMATION
  Report Type: Spontaneous
  Country: GB (occurrence: GB)
  Receive Date: 20190122
  Receipt Date: 20190122
  Transmission Date: 20190417
  Serious: Yes (Hospitalization)
  Sender: FDA-Public Use
  Company Number: GB-ACCORD-102819

PATIENT
  Age: 47 Year
  Sex: Male

DRUGS (12)
  1. PROPRANOLOL [Concomitant]
     Active Substance: PROPRANOLOL HYDROCHLORIDE
  2. SALBUTAMOL [Concomitant]
     Active Substance: ALBUTEROL
  3. CLOZAPINE. [Suspect]
     Active Substance: CLOZAPINE
     Indication: PSYCHOTIC DISORDER
     Dosage: 150MG MORNING, 400MG NOCTE
     Route: 048
  4. ZOPICLONE [Concomitant]
     Active Substance: ZOPICLONE
  5. PARACETAMOL [Concomitant]
     Active Substance: ACETAMINOPHEN
  6. GLICLAZIDE [Concomitant]
     Active Substance: GLICLAZIDE
  7. TIOTROPIUM/TIOTROPIUM BROMIDE [Concomitant]
  8. LAMOTRIGINE. [Concomitant]
     Active Substance: LAMOTRIGINE
  9. HYDROXYZINE [Concomitant]
     Active Substance: HYDROXYZINE HYDROCHLORIDE
  10. DULOXETINE. [Concomitant]
     Active Substance: DULOXETINE
  11. PROCYCLIDINE [Concomitant]
     Active Substance: PROCYCLIDINE
  12. OMEPRAZOLE. [Concomitant]
     Active Substance: OMEPRAZOLE

REACTIONS (1)
  - Intestinal pseudo-obstruction [Recovering/Resolving]

NARRATIVE: CASE EVENT DATE: 20180312
